FAERS Safety Report 6082203-6 (Version None)
Quarter: 2009Q1

REPORT INFORMATION
  Report Type: 
  Country: None (occurrence: None)
  Receive Date: 20090218
  Receipt Date: 20090213
  Transmission Date: 20090719
  Serious: Yes (Other)
  Sender: FDA-Public Use
  Company Number: B0557965A

PATIENT
  Age: 25 Year
  Sex: Female

DRUGS (7)
  1. PAXIL [Suspect]
     Indication: DEPRESSION
     Route: 048
     Dates: start: 20080901
  2. PAXIL [Suspect]
     Indication: DRUG USE FOR UNKNOWN INDICATION
     Route: 048
     Dates: start: 20090203, end: 20090203
  3. LEXOTAN [Concomitant]
     Route: 048
     Dates: start: 20090203, end: 20090203
  4. MYSLEE [Concomitant]
     Route: 048
     Dates: start: 20090203, end: 20090203
  5. LENDORMIN [Concomitant]
     Route: 048
     Dates: start: 20090203, end: 20090203
  6. WYPAX [Concomitant]
     Route: 048
     Dates: start: 20090203, end: 20090203
  7. LANDSEN [Concomitant]
     Route: 048
     Dates: start: 20090203, end: 20090203

REACTIONS (2)
  - INTENTIONAL OVERDOSE [None]
  - SUICIDE ATTEMPT [None]
